FAERS Safety Report 4534287-1 (Version None)
Quarter: 2004Q4

REPORT INFORMATION
  Report Type: 
  Country: None (occurrence: None)
  Receive Date: 20041214
  Receipt Date: 20040820
  Transmission Date: 20050328
  Serious: No
  Sender: FDA-Public Use
  Company Number: 2004230827US

PATIENT
  Age: 77 Year
  Sex: Male
  Weight: 76.2 kg

DRUGS (1)
  1. BEXTRA [Suspect]
     Indication: JOINT SWELLING
     Dosage: SEE IMAGE
     Route: 048
     Dates: start: 20040801

REACTIONS (3)
  - DIZZINESS [None]
  - DRUG INEFFECTIVE [None]
  - MONARTHRITIS [None]
